FAERS Safety Report 4502523-3 (Version None)
Quarter: 2005Q1

REPORT INFORMATION
  Report Type: 
  Country: None (occurrence: None)
  Receive Date: 20041110
  Receipt Date: 20041027
  Transmission Date: 20050727
  Serious: Yes (Hospitalization)
  Sender: FDA-Public Use
  Company Number: 2004-FF-00614FF

PATIENT
  Age: 49 Year
  Sex: Male

DRUGS (6)
  1. VIRAMUNE [Suspect]
     Indication: HIV INFECTION
     Dosage: 400 MG (200 MG)
     Route: 048
     Dates: start: 20030224
  2. AMITRIPTYLINE HYDROCHLORIDE [Concomitant]
  3. NORVIR [Concomitant]
  4. COMBIVIR [Concomitant]
  5. FUZEON [Concomitant]
  6. TELZIR (FOSAMPRENAVIR) [Concomitant]

REACTIONS (2)
  - CD4 LYMPHOCYTES DECREASED [None]
  - PNEUMONIA [None]
